FAERS Safety Report 7504663-3 (Version None)
Quarter: 2011Q2

REPORT INFORMATION
  Report Type: 
  Country: None (occurrence: None)
  Receive Date: 20110525
  Receipt Date: 20110415
  Transmission Date: 20111010
  Serious: Yes (Other)
  Sender: FDA-Public Use
  Company Number: US-AMGEN-USASP2011014241

PATIENT
  Sex: Male
  Weight: 150 kg

DRUGS (8)
  1. NPLATE [Suspect]
     Indication: IDIOPATHIC THROMBOCYTOPENIC PURPURA
     Dosage: 1480 A?G, UNK
     Dates: start: 20100726, end: 20101118
  2. NORVASC [Concomitant]
     Dosage: 10 MG, QD
  3. IMMUNOGLOBULINS [Concomitant]
     Indication: IDIOPATHIC THROMBOCYTOPENIC PURPURA
     Dosage: UNK
     Dates: start: 20100501
  4. LISINOPRIL [Concomitant]
  5. DIPHENHYDRAMINE HCL [Concomitant]
     Dosage: 0 MG, UNK
     Route: 042
  6. RITUXIMAB [Concomitant]
     Indication: IDIOPATHIC THROMBOCYTOPENIC PURPURA
  7. TYLENOL (CAPLET) [Concomitant]
     Dosage: 650 MG, UNK
  8. INSULIN                            /00646001/ [Concomitant]

REACTIONS (1)
  - DRUG INEFFECTIVE [None]
